FAERS Safety Report 8300694-4 (Version None)
Quarter: 2012Q1

REPORT INFORMATION
  Report Type: 
  Country: None (occurrence: None)
  Receive Date: 20120326
  Receipt Date: 20110723
  Transmission Date: 20120608
  Serious: Yes (Other)
  Sender: FDA-Public Use
  Company Number: PHHY2011US57656

PATIENT
  Age: 53 Year
  Sex: Male

DRUGS (3)
  1. EXCEDRIN EXTRA STRENGTH (ACETYLSALICYLIC ACID, CAFFEINE, PARACETAMOL) [Concomitant]
  2. CENTRUM SILVER (ASCORBIC ACID, CALCIUM, MINERALS NOS, RETNOL, TOCOPHER [Concomitant]
  3. TASIGNA [Suspect]
     Indication: CHRONIC MYELOID LEUKAEMIA
     Dosage: 300 MG, BID, ORAL
     Route: 048
     Dates: start: 20110525

REACTIONS (5)
  - ARTHRALGIA [None]
  - NAUSEA [None]
  - DIZZINESS [None]
  - MYALGIA [None]
  - ASTHENIA [None]
